FAERS Safety Report 5699250-6 (Version None)
Quarter: 2008Q2

REPORT INFORMATION
  Report Type: 
  Country: None (occurrence: None)
  Receive Date: 20080407
  Receipt Date: 20080407
  Transmission Date: 20081010
  Serious: Yes (Other)
  Sender: FDA-Public Use
  Company Number: None

PATIENT
  Age: 81 Year
  Sex: Female
  Weight: 54.4316 kg

DRUGS (2)
  1. BONIVA [Suspect]
     Indication: OSTEOPOROSIS
     Dosage: 1 INJECTION 4 TIMES/YEAR
     Dates: start: 20071217, end: 20080301
  2. BONIVA [Suspect]
     Indication: OSTEOPOROSIS
     Dosage: 1 INJECTION 4 TIMES/YEAR
     Dates: start: 20080325

REACTIONS (6)
  - ACTIVITIES OF DAILY LIVING IMPAIRED [None]
  - ARTHRALGIA [None]
  - BONE PAIN [None]
  - MOVEMENT DISORDER [None]
  - NECK PAIN [None]
  - WEIGHT DECREASED [None]
